FAERS Safety Report 5664319-9 (Version None)
Quarter: 2008Q1

REPORT INFORMATION
  Report Type: 
  Country: None (occurrence: None)
  Receive Date: 20080312
  Receipt Date: 20080304
  Transmission Date: 20080703
  Serious: Yes (Other)
  Sender: FDA-Public Use
  Company Number: 2008SP004520

PATIENT
  Age: 61 Year
  Sex: Male

DRUGS (2)
  1. PEG-INTRON [Suspect]
     Indication: HEPATITIS C
     Dosage: SC
     Route: 058
     Dates: start: 20060120, end: 20061223
  2. RIBAVIRIN [Suspect]
     Indication: HEPATITIS C
     Dosage: PO
     Route: 048
     Dates: start: 20060120, end: 20061223

REACTIONS (5)
  - ANGER [None]
  - BLOOD PRESSURE INCREASED [None]
  - CATARACT [None]
  - MACULAR DEGENERATION [None]
  - OPTIC ISCHAEMIC NEUROPATHY [None]
